FAERS Safety Report 14089117 (Version 2)
Quarter: 2017Q4

REPORT INFORMATION
  Report Type: Spontaneous
  Country: FI (occurrence: FI)
  Receive Date: 20171013
  Receipt Date: 20171031
  Transmission Date: 20180321
  Serious: Yes (Hospitalization)
  Sender: FDA-Public Use
  Company Number: PHHY2017FI147100

PATIENT
  Age: 51 Year
  Sex: Male

DRUGS (17)
  1. FLIXONASE [Concomitant]
     Active Substance: FLUTICASONE PROPIONATE
     Indication: UPPER RESPIRATORY TRACT CONGESTION
     Dosage: 100 UG, QD
     Route: 065
  2. SEPRAM [Concomitant]
     Active Substance: CITALOPRAM HYDROBROMIDE
     Indication: DEPRESSED MOOD
     Dosage: 20 MG, QD
     Route: 065
  3. RETAFYLLIN [Concomitant]
     Indication: ASTHMA
     Dosage: 300 MG, BID
     Route: 065
  4. SPIRIVA [Concomitant]
     Active Substance: TIOTROPIUM BROMIDE MONOHYDRATE
     Indication: PRODUCT USED FOR UNKNOWN INDICATION
     Dosage: 18 UG, QD
     Route: 065
  5. KETIPINOR [Concomitant]
     Active Substance: QUETIAPINE FUMARATE
     Indication: ANXIETY
     Dosage: 500 MG (200 MG AND 300 MG A DAY), QD
     Route: 065
  6. TENOX [Concomitant]
     Indication: HYPNOTHERAPY
     Dosage: 20 MG, QD
     Route: 065
  7. LEVOMEPROMAZINE ORION [Concomitant]
     Indication: PSYCHOTIC DISORDER
     Dosage: 100 MG, QD
     Route: 065
  8. DINIT [Concomitant]
     Active Substance: ISOSORBIDE DINITRATE
     Indication: PRODUCT USED FOR UNKNOWN INDICATION
     Dosage: 1.25 MG (1 TO 3 TIMES A DAY WHEN NEEDED), PRN
     Route: 065
  9. TRILEPTAL [Suspect]
     Active Substance: OXCARBAZEPINE
     Indication: PSYCHOTIC DISORDER
     Dosage: 300 MG, BID
     Route: 065
  10. XATRAL CR [Concomitant]
     Indication: PRODUCT USED FOR UNKNOWN INDICATION
     Dosage: 10 MG, QD
     Route: 065
  11. SERETIDE [Concomitant]
     Active Substance: FLUTICASONE PROPIONATE\SALMETEROL XINAFOATE
     Indication: ASTHMA
     Dosage: 2 DF, BID
     Route: 065
  12. PAMOL [Concomitant]
     Active Substance: ACETAMINOPHEN
     Indication: PRODUCT USED FOR UNKNOWN INDICATION
     Dosage: 500 MG TO 1 G, 1 TO 3 TIMES A DAY WHEN NEEDED, PRN
     Route: 065
  13. SIMVASTATIN. [Concomitant]
     Active Substance: SIMVASTATIN
     Indication: BLOOD CHOLESTEROL ABNORMAL
     Dosage: 10 MG, QD
     Route: 065
  14. HIPEKSAL [Concomitant]
     Indication: URINARY TRACT INFECTION
     Dosage: 1 G, BID
     Route: 065
  15. TEMESTA (LORAZEPAM) [Concomitant]
     Active Substance: LORAZEPAM
     Indication: AGGRESSION
     Dosage: 5 MG (1 MG, 2MG, 2MG A DAY), QD
     Route: 065
  16. MINISUN [Concomitant]
     Indication: PRODUCT USED FOR UNKNOWN INDICATION
     Dosage: 25 UG, QD
     Route: 065
  17. PEGORION [Concomitant]
     Active Substance: POLYETHYLENE GLYCOL 4000
     Indication: PRODUCT USED FOR UNKNOWN INDICATION
     Dosage: 12 G, QD (WHEN NEEDED)
     Route: 065

REACTIONS (4)
  - White blood cell count increased [Unknown]
  - Product use in unapproved indication [Unknown]
  - Pulmonary function test decreased [Recovering/Resolving]
  - Dyspnoea [Unknown]
